FAERS Safety Report 19905182 (Version 1)
Quarter: 2021Q4

REPORT INFORMATION
  Report Type: Spontaneous
  Country: US (occurrence: US)
  Receive Date: 20211001
  Receipt Date: 20211001
  Transmission Date: 20220303
  Serious: Yes (Other)
  Sender: FDA-Public Use
  Company Number: US-DRREDDYS-LIT/USA/21/0142193

PATIENT
  Age: 71 Year
  Sex: Male

DRUGS (4)
  1. DOBUTAMINE HYDROCHLORIDE [Suspect]
     Active Substance: DOBUTAMINE HYDROCHLORIDE
     Indication: Left ventricular failure
     Dosage: DOBUTAMINE INFUSION 5 MUG/KG/MIN, THROUGH A PERIPHERALLY INSERTED CENTRAL CATHETER (PICC)
  2. DOBUTAMINE HYDROCHLORIDE [Suspect]
     Active Substance: DOBUTAMINE HYDROCHLORIDE
     Route: 042
  3. GABAPENTIN [Suspect]
     Active Substance: GABAPENTIN
     Indication: Left ventricular failure
  4. SERTRALINE [Suspect]
     Active Substance: SERTRALINE HYDROCHLORIDE
     Indication: Left ventricular failure

REACTIONS (1)
  - Myoclonus [Recovered/Resolved]
